FAERS Safety Report 4797449-4 (Version None)
Quarter: 2005Q4

REPORT INFORMATION
  Report Type: 
  Country: None (occurrence: None)
  Receive Date: 20051006
  Receipt Date: 20051006
  Transmission Date: 20060501
  Serious: Yes (Life-Threatening, Hospitalization)
  Sender: FDA-Public Use
  Company Number: None

PATIENT
  Age: 53 Year
  Sex: Female

DRUGS (6)
  1. HUMALOG [Suspect]
     Indication: DIABETES MELLITUS INSULIN-DEPENDENT
     Dosage: 6 UNITS SQ AC TID
     Route: 058
  2. LANTUS [Suspect]
     Dosage: 20 UNITS SQ Q HS
     Route: 058
  3. ATORVASTATIN [Concomitant]
  4. METOCLOPRAMIDE [Concomitant]
  5. LEVOTHYROXINE [Concomitant]
  6. FLORINEF [Concomitant]

REACTIONS (6)
  - ABNORMAL BEHAVIOUR [None]
  - BLOOD GLUCOSE DECREASED [None]
  - CRYING [None]
  - INADEQUATE DIET [None]
  - MENTAL STATUS CHANGES [None]
  - VISUAL ACUITY REDUCED [None]
